FAERS Safety Report 5402071-2 (Version None)
Quarter: 2007Q3

REPORT INFORMATION
  Report Type: 
  Country: None (occurrence: None)
  Receive Date: 20070727
  Receipt Date: 20040625
  Transmission Date: 20080115
  Serious: Yes (Hospitalization)
  Sender: FDA-Public Use
  Company Number: THYM-10185

PATIENT
  Age: 50 Year
  Sex: Male
  Weight: 87 kg

DRUGS (14)
  1. THYMOGLOBULIN [Suspect]
     Indication: PROPHYLAXIS AGAINST GRAFT VERSUS HOST DISEASE
     Dosage: 44 MG QD IV
     Route: 042
     Dates: start: 20040515, end: 20040515
  2. THYMOGLOBULIN [Suspect]
     Indication: PROPHYLAXIS AGAINST GRAFT VERSUS HOST DISEASE
     Dosage: 178 MG QD IV
     Route: 042
     Dates: start: 20040516, end: 20040519
  3. ACYCLOVIR [Concomitant]
  4. ABLCET [Concomitant]
  5. PROTONIX [Concomitant]
  6. ALPHAGAN [Concomitant]
  7. XALATAN [Concomitant]
  8. ELESTAT [Concomitant]
  9. TPN [Concomitant]
  10. LOMOTIL [Concomitant]
  11. AMLODOPINE [Concomitant]
  12. EFFEXOR [Concomitant]
  13. SUDAFED 12 HOUR [Concomitant]
  14. CHLORASEPTIC SPRAY [Concomitant]

REACTIONS (6)
  - BLOOD BILIRUBIN INCREASED [None]
  - BONE PAIN [None]
  - HEPATIC FUNCTION ABNORMAL [None]
  - INFLUENZA LIKE ILLNESS [None]
  - RASH MACULAR [None]
  - SERUM SICKNESS [None]
